FAERS Safety Report 25023614 (Version 1)
Quarter: 2025Q1

REPORT INFORMATION
  Report Type: Spontaneous
  Country: DE (occurrence: DE)
  Receive Date: 20250228
  Receipt Date: 20250228
  Transmission Date: 20250408
  Serious: Yes (Other)
  Sender: RANBAXY
  Company Number: DE-SUN PHARMACEUTICAL INDUSTRIES LTD-2025RR-497252

PATIENT
  Sex: Male

DRUGS (1)
  1. ESOMEPRAZOLE [Suspect]
     Active Substance: ESOMEPRAZOLE
     Indication: Product used for unknown indication
     Route: 048

REACTIONS (17)
  - Depression [Unknown]
  - Confusional state [Unknown]
  - Insomnia [Unknown]
  - Fatigue [Unknown]
  - Paraesthesia [Unknown]
  - Dry mouth [Unknown]
  - Blood sodium decreased [Unknown]
  - Agitation [Unknown]
  - Vision blurred [Unknown]
  - Wheezing [Unknown]
  - Dyspnoea [Unknown]
  - Alopecia [Unknown]
  - Arthralgia [Unknown]
  - Myalgia [Unknown]
  - Malaise [Unknown]
  - Asthenia [Unknown]
  - Dizziness [Unknown]
